FAERS Safety Report 8035800-2 (Version None)
Quarter: 2012Q1

REPORT INFORMATION
  Report Type: 
  Country: None (occurrence: None)
  Receive Date: 20120106
  Receipt Date: 20111222
  Transmission Date: 20120608
  Serious: Yes (Other)
  Sender: FDA-Public Use
  Company Number: US-1188966

PATIENT
  Age: 81 Year
  Sex: Female
  Weight: 104.3273 kg

DRUGS (4)
  1. BROMDAY [Suspect]
     Indication: POSTOPERATIVE CARE
     Dosage: QD, OPHTHALMIC
     Route: 047
     Dates: start: 20110919, end: 20110919
  2. BSS [Suspect]
     Indication: CATARACT OPERATION
     Dosage: INTRAOCULAR
     Route: 031
     Dates: start: 20110919, end: 20110919
  3. VIGAMOX [Suspect]
     Indication: POSTOPERATIVE CARE
     Dosage: TID OPTHALMIC
     Route: 047
  4. PREDNISOLONE ACETATE [Suspect]
     Indication: POSTOPERATIVE CARE
     Dosage: TID OPHTHALMIC
     Route: 047

REACTIONS (5)
  - HYPOTONY OF EYE [None]
  - RETINAL DETACHMENT [None]
  - BLINDNESS UNILATERAL [None]
  - ENDOPHTHALMITIS [None]
  - EYE PAIN [None]
